FAERS Safety Report 5339375-8 (Version None)
Quarter: 2007Q2

REPORT INFORMATION
  Report Type: 
  Country: None (occurrence: None)
  Receive Date: 20070322
  Receipt Date: 20061017
  Transmission Date: 20071010
  Serious: Yes (Other)
  Sender: FDA-Public Use
  Company Number: 200613867BCC

PATIENT
  Age: 33 Year
  Sex: Female
  Weight: 63.05 kg

DRUGS (4)
  1. ALEVE (CAPLET) [Suspect]
     Indication: BACK PAIN
     Dosage: 220 MG, ONCE; ORAL
     Route: 048
     Dates: start: 20060911
  2. ALEVE (CAPLET) [Suspect]
     Indication: HEADACHE
     Dosage: 220 MG, ONCE; ORAL
     Route: 048
     Dates: start: 20060911
  3. ALBUTEROL [Concomitant]
  4. ADVAIR DISKUS 100/50 [Concomitant]

REACTIONS (5)
  - ASTHMA [None]
  - DYSPNOEA [None]
  - HYPERHIDROSIS [None]
  - RHINORRHOEA [None]
  - WHEEZING [None]
